FAERS Safety Report 14813719 (Version 2)
Quarter: 2018Q2

REPORT INFORMATION
  Report Type: Spontaneous
  Country: US (occurrence: US)
  Receive Date: 20180426
  Receipt Date: 20180607
  Transmission Date: 20180711
  Serious: No
  Sender: FDA-Public Use
  Company Number: US-PFIZER INC-2018121799

PATIENT
  Age: 53 Year
  Sex: Female

DRUGS (4)
  1. DOCETAXEL. [Suspect]
     Active Substance: DOCETAXEL
     Dosage: UNK UNK, EVERY 3 WEEKS, 4 CYCLES
     Dates: start: 201205, end: 201208
  2. DOCETAXEL. [Suspect]
     Active Substance: DOCETAXEL
     Dosage: UNK UNK, EVERY 3 WEEKS, 4 CYCLES
     Dates: start: 201205, end: 201208
  3. TAXOTERE [Suspect]
     Active Substance: DOCETAXEL
     Dosage: UNK, EVERY 3 WEEKS, 4 CYCLES
     Dates: start: 201205, end: 201208
  4. DOCEFREZ [Suspect]
     Active Substance: DOCETAXEL ANHYDROUS
     Dosage: UNK UNK, EVERY 3 WEEKS, 4 CYCLES
     Dates: start: 201205, end: 201208

REACTIONS (1)
  - Alopecia [Unknown]
